FAERS Safety Report 23019920 (Version 1)
Quarter: 2023Q4

REPORT INFORMATION
  Report Type: Spontaneous
  Country: US (occurrence: None)
  Receive Date: 20231002
  Receipt Date: 20231002
  Transmission Date: 20240110
  Serious: Yes (Hospitalization)
  Sender: FDA-Public Use
  Company Number: None

PATIENT
  Age: 64 Year
  Sex: Male
  Weight: 90 kg

DRUGS (8)
  1. EXPAREL [Suspect]
     Active Substance: BUPIVACAINE
     Indication: Nerve block
     Dosage: OTHER FREQUENCY : ONCE;?OTHER ROUTE : FEMORAL NERVE BLOCK FOR TOTAL KNEE SURGE;?
     Route: 050
     Dates: start: 20230818, end: 20230818
  2. EXPAREL [Suspect]
     Active Substance: BUPIVACAINE
     Indication: Knee arthroplasty
  3. VERSED [Concomitant]
     Active Substance: MIDAZOLAM HYDROCHLORIDE
     Dates: start: 20230818, end: 20230818
  4. FENTANYL [Concomitant]
     Active Substance: FENTANYL
     Dates: start: 20230818, end: 20230818
  5. TORADOL [Concomitant]
     Active Substance: KETOROLAC TROMETHAMINE
     Dates: start: 20230818, end: 20230818
  6. ROBAXIN [Concomitant]
     Active Substance: METHOCARBAMOL
     Dates: start: 20230818, end: 20230818
  7. KETAMINE [Concomitant]
     Active Substance: KETAMINE
     Dates: start: 20230818, end: 20230818
  8. PROPOFOL [Concomitant]
     Active Substance: PROPOFOL
     Dates: start: 20230818, end: 20230818

REACTIONS (5)
  - Drug hypersensitivity [None]
  - Stevens-Johnson syndrome [None]
  - Pulmonary embolism [None]
  - Postoperative thrombosis [None]
  - Deep vein thrombosis [None]

NARRATIVE: CASE EVENT DATE: 20230827
